FAERS Safety Report 6904357-9 (Version None)
Quarter: 2010Q3

REPORT INFORMATION
  Report Type: 
  Country: None (occurrence: None)
  Receive Date: 20100804
  Receipt Date: 20090427
  Transmission Date: 20110219
  Serious: No
  Sender: FDA-Public Use
  Company Number: US-PFIZER INC-2009204681

PATIENT
  Sex: Female
  Weight: 82.1 kg

DRUGS (8)
  1. LYRICA [Suspect]
     Indication: NEURALGIA
     Dosage: 50 MG, 3X/DAY
     Dates: start: 20090408
  2. MONTELUKAST SODIUM [Concomitant]
     Indication: ASTHMA
     Dosage: UNK
  3. FORADIL [Concomitant]
     Indication: ASTHMA
     Dosage: UNK
  4. PULMICORT [Concomitant]
     Indication: ASTHMA
     Dosage: UNK
  5. LASIX [Concomitant]
     Dosage: UNK
  6. TRANXENE [Concomitant]
     Dosage: UNK
  7. LORTAB [Concomitant]
     Dosage: UNK
  8. ACIPHEX [Concomitant]

REACTIONS (3)
  - DIZZINESS [None]
  - DRUG INEFFECTIVE [None]
  - VISION BLURRED [None]
